FAERS Safety Report 23080277 (Version 3)
Quarter: 2023Q4

REPORT INFORMATION
  Report Type: Spontaneous
  Country: JP (occurrence: JP)
  Receive Date: 20231018
  Receipt Date: 20231114
  Transmission Date: 20240109
  Serious: Yes (Other)
  Sender: FDA-Public Use
  Company Number: JP-AMGEN-JPNSP2023181767

PATIENT
  Age: 40 Year
  Sex: Male

DRUGS (2)
  1. BLINCYTO [Suspect]
     Active Substance: BLINATUMOMAB
     Indication: B precursor type acute leukaemia
     Dosage: 9 MICROGRAM, 24 HOUR DIV (DRIP INTRAVENOUS INFUSION)
     Route: 042
     Dates: start: 20230816, end: 202309
  2. BLINCYTO [Suspect]
     Active Substance: BLINATUMOMAB
     Dosage: UNK, 24 HOUR DIV (DRIP INTRAVENOUS INFUSION)
     Route: 042
     Dates: start: 20231031

REACTIONS (1)
  - Neuropathy peripheral [Recovering/Resolving]

NARRATIVE: CASE EVENT DATE: 20230101
